FAERS Safety Report 20758792 (Version 1)
Quarter: 2022Q2

REPORT INFORMATION
  Report Type: Report from Study
  Country: DE (occurrence: DE)
  Receive Date: 20220427
  Receipt Date: 20220427
  Transmission Date: 20220721
  Serious: Yes (Other)
  Sender: FDA-Public Use
  Company Number: DE-KYOWAKIRIN-2022BKK005723

PATIENT

DRUGS (3)
  1. BUROSUMAB [Suspect]
     Active Substance: BUROSUMAB
     Indication: Hereditary hypophosphataemic rickets
     Dosage: 7 MG
     Route: 058
     Dates: start: 20210601
  2. BUROSUMAB [Suspect]
     Active Substance: BUROSUMAB
     Dosage: UNK
     Route: 058
     Dates: start: 20220413
  3. CHOLECALCIFEROL [Concomitant]
     Active Substance: CHOLECALCIFEROL
     Indication: Product used for unknown indication
     Dosage: 1000 MG 1XDAILY
     Route: 048
     Dates: start: 20220203

REACTIONS (1)
  - Subglottic laryngitis [Recovered/Resolved]

NARRATIVE: CASE EVENT DATE: 20220403
